FAERS Safety Report 7928331-9 (Version None)
Quarter: 2011Q4

REPORT INFORMATION
  Report Type: 
  Country: None (occurrence: None)
  Receive Date: 20111118
  Receipt Date: 20111109
  Transmission Date: 20120403
  Serious: Yes (Hospitalization)
  Sender: FDA-Public Use
  Company Number: US-BAYER-2011-033359

PATIENT
  Age: 22 Year
  Sex: Female
  Weight: 54 kg

DRUGS (6)
  1. YASMIN [Suspect]
     Indication: ORAL CONTRACEPTION
  2. M.V.I. [Concomitant]
  3. PREVACID [Concomitant]
  4. NSAID'S [Concomitant]
     Dosage: UNK UNK, PRN
     Dates: start: 19960101
  5. ESTROSTEP [Concomitant]
  6. YASMIN [Suspect]
     Indication: ACNE
     Dosage: UNK
     Route: 048
     Dates: start: 20020101, end: 20040101

REACTIONS (4)
  - BILIARY COLIC [None]
  - GALLBLADDER DISORDER [None]
  - INJURY [None]
  - PAIN [None]
